FAERS Safety Report 4421387-X (Version None)
Quarter: 2004Q3

REPORT INFORMATION
  Report Type: 
  Country: None (occurrence: None)
  Receive Date: 20040706
  Receipt Date: 20040413
  Transmission Date: 20050211
  Serious: Yes (Life-Threatening)
  Sender: FDA-Public Use
  Company Number: 233973

PATIENT
  Age: 75 Year
  Sex: Male
  Weight: 97.5 kg

DRUGS (9)
  1. NOVOLOG [Suspect]
     Indication: INSULIN-REQUIRING TYPE II DIABETES MELLITUS
     Dosage: 5 IU, TID, SUBCUTANEOUS
     Route: 058
     Dates: start: 20031103
  2. LANTUS [Concomitant]
  3. LASIX  /SCH/  (FUROSEMIDE, FUROSEMIDE SODIUM) [Concomitant]
  4. COREG [Concomitant]
  5. COZAAR [Concomitant]
  6. ASPIRIN [Concomitant]
  7. IMDUR [Concomitant]
  8. NORVASC    /DEN/ (AMLODIPINE BESILATE) [Concomitant]
  9. ZOCOR [Concomitant]

REACTIONS (2)
  - HYPOGLYCAEMIC COMA [None]
  - MEDICATION ERROR [None]
